FAERS Safety Report 11886895 (Version 1)
Quarter: 2016Q1

REPORT INFORMATION
  Report Type: Spontaneous
  Country: US (occurrence: US)
  Receive Date: 20160104
  Receipt Date: 20160104
  Transmission Date: 20160526
  Serious: No
  Sender: FDA-Public Use
  Company Number: US-BAYER-2016-000458

PATIENT
  Age: 83 Year
  Sex: Female

DRUGS (1)
  1. CLARITIN REDITABS [Suspect]
     Active Substance: LORATADINE
     Indication: RASH PRURITIC
     Dosage: UNK

REACTIONS (2)
  - Diarrhoea [None]
  - Product use issue [None]
